FAERS Safety Report 4887832-0 (Version None)
Quarter: 2006Q1

REPORT INFORMATION
  Report Type: 
  Country: None (occurrence: None)
  Receive Date: 20060123
  Receipt Date: 20050414
  Transmission Date: 20060701
  Serious: Yes (Hospitalization, Disabling, Other)
  Sender: FDA-Public Use
  Company Number: US-MERCK-0504USA02363

PATIENT
  Age: 61 Year
  Sex: Male
  Weight: 141 kg

DRUGS (8)
  1. VIOXX [Suspect]
     Indication: ARTHRALGIA
     Route: 048
     Dates: start: 20030201, end: 20040930
  2. VIOXX [Suspect]
     Route: 065
     Dates: start: 20040130
  3. INSULIN [Concomitant]
     Route: 065
  4. COUMADIN [Concomitant]
     Route: 065
  5. CAPTOPRIL MSD [Concomitant]
     Route: 065
  6. FUROSEMIDE [Concomitant]
     Route: 065
  7. CAPOTEN [Concomitant]
     Route: 065
  8. TYLENOL (CAPLET) [Concomitant]
     Route: 065

REACTIONS (19)
  - ANEURYSM [None]
  - ANGINA UNSTABLE [None]
  - ASTHENIA [None]
  - ATRIAL FIBRILLATION [None]
  - BRACHIAL PLEXUS INJURY [None]
  - BRADYCARDIA [None]
  - CARDIAC FAILURE CONGESTIVE [None]
  - CARDIOMYOPATHY [None]
  - CARPAL TUNNEL SYNDROME [None]
  - CORONARY ARTERY DISEASE [None]
  - DEHYDRATION [None]
  - DIABETIC AMYOTROPHY [None]
  - FALL [None]
  - MALAISE [None]
  - MITRAL VALVE INCOMPETENCE [None]
  - MYOCARDIAL INFARCTION [None]
  - NERVE INJURY [None]
  - PALPITATIONS [None]
  - PERIPHERAL SENSORY NEUROPATHY [None]
